FAERS Safety Report 6269386-X (Version None)
Quarter: 2009Q3

REPORT INFORMATION
  Report Type: 
  Country: None (occurrence: None)
  Receive Date: 20090713
  Receipt Date: 20090702
  Transmission Date: 20100115
  Serious: Yes (Hospitalization, Other)
  Sender: FDA-Public Use
  Company Number: SPVI-2009-01267

PATIENT
  Age: 14 Year
  Sex: Male
  Weight: 22 kg

DRUGS (20)
  1. ELAPRASE [Suspect]
     Indication: MUCOPOLYSACCHARIDOSIS II
     Dosage: 6 ML, 1X/WEEK, IV DRIP
     Route: 042
     Dates: start: 20080626
  2. HYDROCORTISONE [Concomitant]
  3. DESLORATADINE (DESLORATADINE) [Concomitant]
  4. AMINOFILLIN (AMINOPHYLLINE) [Concomitant]
  5. PHENOBARBITAL TAB [Concomitant]
  6. DIPIRONE (METAMIZOLE SODIUM) [Concomitant]
  7. TRAMADOL HCL [Concomitant]
  8. METHADONE HCL [Concomitant]
  9. DIMETHICONE /00159501/ (DIMETICONE) [Concomitant]
  10. ATROPINE [Concomitant]
  11. GARAMYCIN /00047101/(GENTAMICIN) [Concomitant]
  12. IPRATROPIUM BROMIDE [Concomitant]
  13. ACETYLCYSTEINE [Concomitant]
  14. IRON (IRON) [Concomitant]
  15. FOLATE (FOLIC ACID) [Concomitant]
  16. VITAMIN B12 [Concomitant]
  17. FUROSEMIDE [Concomitant]
  18. ACETAMINOPHEN [Concomitant]
  19. MIDAZOLAM HCL [Concomitant]
  20. BUTYLSCOPOLAMINE (BUTYLSCOPOLAMINE) [Concomitant]

REACTIONS (14)
  - ANAEMIA [None]
  - BACTERIAL INFECTION [None]
  - BRONCHOSPASM [None]
  - CARDIAC FAILURE [None]
  - DISEASE COMPLICATION [None]
  - GENERAL PHYSICAL HEALTH DETERIORATION [None]
  - HYDROCEPHALUS [None]
  - HYPERTENSION [None]
  - INFUSION RELATED REACTION [None]
  - MALNUTRITION [None]
  - POST PROCEDURAL COMPLICATION [None]
  - PYREXIA [None]
  - RASH [None]
  - TACHYCARDIA [None]
